FAERS Safety Report 5242777-1 (Version None)
Quarter: 2007Q1

REPORT INFORMATION
  Report Type: 
  Country: None (occurrence: None)
  Receive Date: 20070214
  Receipt Date: 20070201
  Transmission Date: 20070707
  Serious: Yes (Hospitalization)
  Sender: FDA-Public Use
  Company Number: 2007-00089

PATIENT
  Age: 82 Year
  Sex: Female
  Weight: 53 kg

DRUGS (4)
  1. VELCADE [Suspect]
     Indication: MULTIPLE MYELOMA
     Dosage: SEE IMAGE
     Route: 045
     Dates: start: 20061204, end: 20070105
  2. VELCADE [Suspect]
     Indication: MULTIPLE MYELOMA
     Dosage: SEE IMAGE
     Route: 045
     Dates: start: 20070117
  3. MELPHALAN (MELPHALAN) VIAL [Suspect]
     Indication: MULTIPLE MYELOMA
     Dates: start: 20061204
  4. PREDNISONE [Suspect]
     Indication: MULTIPLE MYELOMA
     Dates: start: 20061204

REACTIONS (4)
  - BRONCHOSPASM [None]
  - ERYTHEMA [None]
  - HYPERSENSITIVITY [None]
  - URTICARIA [None]
